FAERS Safety Report 4636858-0 (Version None)
Quarter: 2005Q2

REPORT INFORMATION
  Report Type: 
  Country: None (occurrence: None)
  Receive Date: 20050414
  Receipt Date: 20050401
  Transmission Date: 20051028
  Serious: Yes (Hospitalization)
  Sender: FDA-Public Use
  Company Number: 2005AP02011

PATIENT
  Age: 47 Year
  Sex: Male
  Weight: 53 kg

DRUGS (7)
  1. IRESSA [Suspect]
     Indication: COLORECTAL CANCER METASTATIC
     Dosage: 250 MG DAILY PO
     Route: 048
     Dates: start: 20050129, end: 20050330
  2. IRINOTECAN HCL [Suspect]
     Indication: RECTAL CANCER METASTATIC
     Dosage: 180 MG/M2 IV
     Route: 042
     Dates: start: 20050321, end: 20050321
  3. FOLINIC ACID [Suspect]
     Indication: RECTAL CANCER METASTATIC
     Dosage: 200 MG/M2
     Dates: start: 20050321, end: 20050322
  4. FLUOROURACIL [Suspect]
     Indication: RECTAL CANCER METASTATIC
     Dosage: 400 MG/M2 IV
     Route: 042
     Dates: start: 20050321, end: 20050322
  5. FLUOROURACIL [Suspect]
     Indication: RECTAL CANCER METASTATIC
     Dosage: 600 MG/M2 IV
     Route: 042
     Dates: start: 20050321, end: 20050322
  6. SOLOSA [Concomitant]
  7. RABEPRAZOLE SODIUM [Concomitant]

REACTIONS (7)
  - ABDOMINAL PAIN [None]
  - ANAEMIA [None]
  - ANOREXIA [None]
  - DIARRHOEA [None]
  - NAUSEA [None]
  - VOMITING [None]
  - WEIGHT DECREASED [None]
